FAERS Safety Report 5496288-9 (Version None)
Quarter: 2007Q4

REPORT INFORMATION
  Report Type: 
  Country: None (occurrence: None)
  Receive Date: 20071025
  Receipt Date: 20070321
  Transmission Date: 20080405
  Serious: No
  Sender: FDA-Public Use
  Company Number: A0644086A

PATIENT
  Age: 69 Year
  Sex: Female

DRUGS (5)
  1. ADVAIR DISKUS 100/50 [Suspect]
     Indication: CHRONIC OBSTRUCTIVE PULMONARY DISEASE
     Dosage: 2PUFF TWICE PER DAY
     Route: 055
     Dates: start: 20030101
  2. COMBIVENT [Concomitant]
  3. ZOCOR [Concomitant]
  4. SINGULAIR [Concomitant]
  5. OXYGEN [Concomitant]

REACTIONS (8)
  - ARTHRALGIA [None]
  - DRUG INEFFECTIVE [None]
  - EAR INFECTION [None]
  - FALL [None]
  - IMPAIRED HEALING [None]
  - LACRIMATION INCREASED [None]
  - OTORRHOEA [None]
  - PAIN IN EXTREMITY [None]
